FAERS Safety Report 7284532-7 (Version None)
Quarter: 2011Q1

REPORT INFORMATION
  Report Type: 
  Country: None (occurrence: None)
  Receive Date: 20110209
  Receipt Date: 20110201
  Transmission Date: 20110831
  Serious: Yes (Death, Hospitalization, Other)
  Sender: FDA-Public Use
  Company Number: DE-BRISTOL-MYERS SQUIBB COMPANY-15203995

PATIENT
  Age: 69 Year
  Sex: Female

DRUGS (61)
  1. GENTAMICIN [Concomitant]
     Indication: ANTIBIOTIC THERAPY
  2. VANCOMYCIN HCL [Concomitant]
     Indication: ANTIBIOTIC THERAPY
     Route: 042
  3. LERCANIDIPINE [Concomitant]
     Dosage: TABS
  4. LACTULOSE [Concomitant]
     Dosage: TABLESPOONS
  5. CIPRALEX [Concomitant]
     Dosage: TABS,FORMULATION:10
  6. CALCIUM CARBONATE [Concomitant]
  7. CO-DIOVAN [Concomitant]
     Dosage: 1 DF:160/12.5MG
  8. ARTELAC [Concomitant]
     Dosage: EYEDROPS
  9. LACRIGEL [Concomitant]
  10. INSULIN HUMAN [Concomitant]
     Dosage: 40 ML = 2UNIT/HR
     Dates: start: 20091202, end: 20091204
  11. TILIDINE [Concomitant]
     Dosage: 100 RETARD
  12. ROCEPHIN [Concomitant]
     Route: 042
     Dates: end: 20091109
  13. MERONEM [Concomitant]
     Indication: ANTIBIOTIC THERAPY
  14. VALSARTAN  AND HYDROCHLOROTHIAZIDE [Concomitant]
     Dosage: FORMULATION:TABS,FORMULATION:160/12.5
  15. TORSEMIDE [Concomitant]
     Dosage: TABS,FORMULATION:TABS
  16. LONOLOX [Concomitant]
     Dosage: TABLET,FORMULATION:5
  17. ROXITHROMYCIN [Concomitant]
     Dosage: FORMULATION:150
     Dates: end: 20091110
  18. KALINOR [Concomitant]
     Dosage: EFFEVESCENT TABS
  19. MERONEM [Concomitant]
  20. LIPIDS [Concomitant]
     Dosage: 250 ML FROM 02-DEC-2009 AT 12.00 A.M. UNTIL 03-DEC-2009 12.00 A.M.
     Dates: start: 20091202, end: 20091203
  21. VALORON [Concomitant]
     Dosage: DOSAGE:200MG RETARD
  22. CELEBREX [Concomitant]
  23. CERNEVIT-12 [Concomitant]
     Dates: start: 20091202
  24. POLYSPECTRAN [Concomitant]
     Route: 046
  25. NUTRISON MULTIFIBRE [Concomitant]
     Dosage: FEEDING TUBE
  26. PANTOPRAZOLE [Concomitant]
     Dosage: NA45,TABS
     Route: 042
  27. NOVALGIN [Concomitant]
     Dosage: 1 DF=1000 2000 1000 1000 1000
  28. LACRIGEL [Concomitant]
     Dosage: GEL IN BOTH EYES
  29. ASPIRIN [Concomitant]
     Route: 042
  30. SAROTEN [Concomitant]
  31. SAB SIMPLEX [Concomitant]
  32. OMEPRAZOLE [Concomitant]
     Dosage: DOSAGE:2/DAY AMPULES,FORMLATION:40
     Route: 042
  33. FUROSEMIDE [Concomitant]
     Dosage: DOSAGE:20MG,2/DAY
     Route: 042
  34. NAFTIDROFURYL HYDROGEN OXALATE [Concomitant]
  35. ARTELAC [Concomitant]
     Dosage: DROPS ON BOTH SIDES
  36. CERNEVIT-12 [Concomitant]
     Dates: start: 20091202, end: 20091203
  37. ORENCIA [Suspect]
     Dosage: ON 20OCT09: ABATACEPT INF AT 750MG
     Route: 042
     Dates: start: 20090901, end: 20100301
  38. ROCEPHIN [Concomitant]
     Route: 042
  39. LAXOBERAL [Concomitant]
     Dosage: 1 DF:12GTT.
  40. MEROPENEM [Concomitant]
     Route: 042
  41. COMBID [Concomitant]
  42. DIGITOXIN [Concomitant]
     Dosage: TABS,FORMULATION:0.07
  43. VANCOMYCIN [Concomitant]
     Dosage: 1 DF= 0 1 0 0 0 G INFUS
  44. SODIUM CHLORIDE 0.9% [Concomitant]
     Dosage: DOSAGE:AEROSOL
     Route: 042
  45. MUCOSOLVAN [Concomitant]
     Route: 042
  46. TAVOR [Concomitant]
     Dosage: INJEK
     Route: 042
  47. GLUCOSE [Concomitant]
     Dosage: STOPPED03DEC09,THEN03DEC09-3DEC09,
     Dates: start: 20091202, end: 20091203
  48. PREDNISOLONE [Suspect]
  49. CALCIUM + VITAMIN D [Concomitant]
  50. BELOC-ZOK [Concomitant]
     Dosage: TABS
     Route: 042
  51. KONAKION [Concomitant]
     Route: 042
     Dates: start: 20091202, end: 20091203
  52. MUCOSOLVAN [Concomitant]
     Dosage: 1 DF= 15 15 0 0 0 MG
     Route: 042
  53. CLEXANE [Concomitant]
     Indication: THROMBOSIS PROPHYLAXIS
     Route: 058
  54. ANTRAMUPS [Concomitant]
  55. MESALAMINE [Concomitant]
  56. TRACUTIL [Concomitant]
     Dates: start: 20091203, end: 20091203
  57. RINGERS SOLUTION, LACTATED [Concomitant]
  58. CANDIO-HERMAL [Concomitant]
  59. ACICLOVIR [Concomitant]
     Route: 042
     Dates: end: 20091111
  60. LORAZEPAM [Concomitant]
     Dosage: 1 DF= 0.5 MG
     Route: 042
  61. AMINO ACID + ELECTROLYTES [Concomitant]
     Dosage: 500 ML FROM 03-DEC-2009 AT 0:00H UNTIL 12.00 A.M
     Dates: start: 20091203

REACTIONS (10)
  - VASCULITIS [None]
  - ENDOCARDITIS [None]
  - MULTI-ORGAN FAILURE [None]
  - RHEUMATOID ARTHRITIS [None]
  - ATRIAL FIBRILLATION [None]
  - ENCEPHALITIS [None]
  - GASTROENTERITIS [None]
  - ARTHRITIS INFECTIVE [None]
  - SEPSIS [None]
  - SYSTEMIC INFLAMMATORY RESPONSE SYNDROME [None]
